FAERS Safety Report 10727522 (Version 1)
Quarter: 2015Q1

REPORT INFORMATION
  Report Type: Spontaneous
  Country: CA (occurrence: CA)
  Receive Date: 20150121
  Receipt Date: 20150121
  Transmission Date: 20150721
  Serious: Yes (Other)
  Sender: FDA-Public Use
  Company Number: CA-009507513-1501CAN005939

PATIENT
  Sex: Male

DRUGS (2)
  1. TEMODAL [Suspect]
     Active Substance: TEMOZOLOMIDE
     Indication: METASTATIC MALIGNANT MELANOMA
  2. TEMODAL [Suspect]
     Active Substance: TEMOZOLOMIDE
     Indication: METASTASES TO LUNG
     Dosage: 395 MG, OD X 5 DAYS PER 28 DAY CYCLE
     Route: 048
     Dates: start: 20130829, end: 20141120

REACTIONS (1)
  - Metastases to central nervous system [Unknown]
